FAERS Safety Report 5178821-X (Version None)
Quarter: 2006Q4

REPORT INFORMATION
  Report Type: 
  Country: None (occurrence: None)
  Receive Date: 20061208
  Receipt Date: 20061127
  Transmission Date: 20070319
  Serious: Yes (Hospitalization)
  Sender: FDA-Public Use
  Company Number: B0449074A

PATIENT
  Sex: Male

DRUGS (7)
  1. CEFAZOLIN SODIUM [Suspect]
     Dosage: 1 GRAM (S)/THREE TIMES PER DAY/TRANS
     Route: 064
  2. RITODRINE HCL [Suspect]
     Dosage: TRANSPLACENTARY
     Route: 064
  3. BETAMETHASONE [Suspect]
     Dosage: TRANSPLACENTARY
     Route: 064
  4. GENTAMICIN SULFATE [Suspect]
     Dosage: 80 MG / TWICE PER DAY/ TRANSPLACEN
     Route: 064
  5. AMPICILLIN TRIHYDRATE [Suspect]
  6. CEFOTAXIME SODIUM [Suspect]
  7. GENTAMICIN SULFATE [Suspect]

REACTIONS (16)
  - APGAR SCORE LOW [None]
  - CAESAREAN SECTION [None]
  - CHORIOAMNIONITIS [None]
  - CNS VENTRICULITIS [None]
  - CONVULSION NEONATAL [None]
  - DRUG EXPOSURE DURING PREGNANCY [None]
  - ENCEPHALITIS [None]
  - FOETAL DISTRESS SYNDROME [None]
  - FOETAL HEART RATE DECELERATION [None]
  - FOETAL MOVEMENTS DECREASED [None]
  - INTRAVENTRICULAR HAEMORRHAGE NEONATAL [None]
  - LISTERIOSIS [None]
  - MENINGITIS NEONATAL [None]
  - PREMATURE BABY [None]
  - RASH NEONATAL [None]
  - SEPSIS NEONATAL [None]
